FAERS Safety Report 6616489-3 (Version None)
Quarter: 2010Q1

REPORT INFORMATION
  Report Type: 
  Country: None (occurrence: None)
  Receive Date: 20100305
  Receipt Date: 20100224
  Transmission Date: 20100710
  Serious: Yes (Hospitalization, Other)
  Sender: FDA-Public Use
  Company Number: US-PFIZER INC-2010021602

PATIENT
  Sex: Female
  Weight: 56.7 kg

DRUGS (6)
  1. LIPITOR [Suspect]
     Indication: BLOOD CHOLESTEROL INCREASED
     Dosage: 10 MG, 1X/DAY, DAILY
     Route: 048
     Dates: start: 20060101
  2. SYNTHROID [Concomitant]
     Indication: HYPOTHYROIDISM
     Dosage: UNK
  3. CELEBREX [Concomitant]
     Indication: OSTEOARTHRITIS
     Dosage: UNK
  4. VESICARE [Concomitant]
     Indication: MICTURITION URGENCY
     Dosage: UNK
  5. LISINOPRIL [Concomitant]
     Indication: HYPERTENSION
     Dosage: 5 MG, UNK
  6. FOSAMAX [Concomitant]
     Dosage: UNK

REACTIONS (4)
  - ARTHRITIS [None]
  - BLOOD CHOLESTEROL INCREASED [None]
  - BLOOD PRESSURE INCREASED [None]
  - KNEE ARTHROPLASTY [None]
